FAERS Safety Report 15989668 (Version 3)
Quarter: 2019Q1

REPORT INFORMATION
  Report Type: Spontaneous
  Country: US (occurrence: US)
  Receive Date: 20190221
  Receipt Date: 20190227
  Transmission Date: 20190418
  Serious: No
  Sender: FDA-Public Use
  Company Number: US-PFIZER INC-2019076336

PATIENT
  Age: 68 Year
  Sex: Female
  Weight: 111.1 kg

DRUGS (1)
  1. EUCRISA [Suspect]
     Active Substance: CRISABOROLE
     Indication: ECZEMA
     Dosage: UNK
     Dates: start: 20190208

REACTIONS (5)
  - Application site pain [Unknown]
  - Application site swelling [Unknown]
  - Application site erythema [Unknown]
  - Wrong technique in product usage process [Unknown]
  - Application site inflammation [Unknown]

NARRATIVE: CASE EVENT DATE: 201902
